FAERS Safety Report 8368929-X (Version None)
Quarter: 2012Q2

REPORT INFORMATION
  Report Type: 
  Country: None (occurrence: None)
  Receive Date: 20120518
  Receipt Date: 20120504
  Transmission Date: 20120825
  Serious: Yes (Hospitalization)
  Sender: FDA-Public Use
  Company Number: FR-VERTEX PHARMACEUTICALS INC.-000000000000000669

PATIENT
  Sex: Male
  Weight: 68 kg

DRUGS (12)
  1. PAROXETINE [Concomitant]
     Indication: DEPRESSION
     Dates: start: 20030101
  2. ALDACTONE [Concomitant]
     Indication: ASCITES
     Dates: start: 20120217
  3. LASIX [Concomitant]
     Indication: ASCITES
     Dates: start: 20120217
  4. RABEPRAZOLE SODIUM [Concomitant]
     Indication: DYSPEPSIA
  5. XYZAL [Concomitant]
     Indication: PRURITUS
     Dates: start: 20120217
  6. COPEGUS [Concomitant]
     Dates: start: 20111130
  7. PEGASYS [Concomitant]
     Indication: HEPATITIS C
     Dates: start: 20111130
  8. PEGASYS [Concomitant]
     Dates: start: 20111130
  9. TELAPREVIR [Suspect]
     Indication: HEPATITIS C
     Dosage: DOSAGE FORM: TABLET
     Dates: start: 20111130, end: 20120217
  10. PROPRANOLOL [Concomitant]
     Indication: VARICES OESOPHAGEAL
     Dates: start: 20110101
  11. COPEGUS [Concomitant]
     Indication: HEPATITIS C
     Dates: start: 20111130
  12. OTHER NUTRIENTS [Concomitant]
     Indication: DECREASED APPETITE

REACTIONS (2)
  - ASCITES [None]
  - HEPATIC NEOPLASM MALIGNANT [None]
